FAERS Safety Report 22083653 (Version 1)
Quarter: 2023Q1

REPORT INFORMATION
  Report Type: Spontaneous
  Country: US (occurrence: US)
  Receive Date: 20230310
  Receipt Date: 20230310
  Transmission Date: 20230418
  Serious: No
  Sender: FDA-Public Use
  Company Number: US-GSK-US2023AMR036850

PATIENT
  Sex: Female

DRUGS (1)
  1. BENLYSTA [Suspect]
     Active Substance: BELIMUMAB
     Indication: Lupus-like syndrome
     Dosage: 200 MG/ML, WE(EVERY WEEK)
     Route: 058
     Dates: end: 202301

REACTIONS (2)
  - Infection [Unknown]
  - Pain in extremity [Unknown]
